FAERS Safety Report 8131807-5 (Version None)
Quarter: 2012Q1

REPORT INFORMATION
  Report Type: 
  Country: None (occurrence: None)
  Receive Date: 20120207
  Receipt Date: 20120125
  Transmission Date: 20120608
  Serious: Yes (Other)
  Sender: FDA-Public Use
  Company Number: AUR-APL-2012-00763

PATIENT
  Age: 49 Year
  Sex: Male

DRUGS (2)
  1. GLYBURIDE [Suspect]
     Indication: SUICIDE ATTEMPT
     Dosage: (350 MG), ORAL
     Route: 048
  2. METFORMIN HCL [Suspect]
     Indication: SUICIDE ATTEMPT
     Dosage: (52 GM), ORAL
     Route: 048

REACTIONS (7)
  - LACTIC ACIDOSIS [None]
  - DEAFNESS NEUROSENSORY [None]
  - RESPIRATORY FAILURE [None]
  - SUICIDE ATTEMPT [None]
  - HYPOGLYCAEMIA [None]
  - INTENTIONAL OVERDOSE [None]
  - HYPOTENSION [None]
